FAERS Safety Report 18179325 (Version 1)
Quarter: 2020Q3

REPORT INFORMATION
  Report Type: Spontaneous
  Country: FR (occurrence: FR)
  Receive Date: 20200821
  Receipt Date: 20200821
  Transmission Date: 20201103
  Serious: Yes (Hospitalization, Other)
  Sender: FDA-Public Use
  Company Number: FR-BRISTOL-MYERS SQUIBB COMPANY-BMS-2020-066854

PATIENT
  Age: 78 Year
  Sex: Female
  Weight: 53.3 kg

DRUGS (1)
  1. OPDIVO [Suspect]
     Active Substance: NIVOLUMAB
     Indication: RENAL CANCER STAGE IV
     Dosage: 3 MILLIGRAM/KILOGRAM, 15 DAYS
     Route: 041
     Dates: start: 20200528, end: 20200611

REACTIONS (2)
  - Pemphigoid [Recovering/Resolving]
  - Off label use [Unknown]

NARRATIVE: CASE EVENT DATE: 20200624
